FAERS Safety Report 15864400 (Version 1)
Quarter: 2019Q1

REPORT INFORMATION
  Report Type: Spontaneous
  Country: NL (occurrence: NL)
  Receive Date: 20190124
  Receipt Date: 20190124
  Transmission Date: 20190417
  Serious: Yes (Other)
  Sender: FDA-Public Use
  Company Number: NL-MYLANLABS-2019M1006218

PATIENT
  Age: 8 Year
  Sex: Male

DRUGS (2)
  1. DOXYCYCLINE. [Suspect]
     Active Substance: DOXYCYCLINE
     Indication: LYME DISEASE
     Dosage: UNK UNK, UNKNOWN FREQ.
     Route: 065
  2. DOXYCYCLINE. [Suspect]
     Active Substance: DOXYCYCLINE
     Indication: ERYTHEMA MIGRANS

REACTIONS (4)
  - Onychomadesis [Recovering/Resolving]
  - Photosensitivity reaction [Recovering/Resolving]
  - Nail discolouration [Recovering/Resolving]
  - Blister [Recovering/Resolving]
